FAERS Safety Report 7730723-8 (Version None)
Quarter: 2011Q3

REPORT INFORMATION
  Report Type: 
  Country: None (occurrence: None)
  Receive Date: 20110906
  Receipt Date: 20110105
  Transmission Date: 20111222
  Serious: Yes (Other)
  Sender: FDA-Public Use
  Company Number: JP-GLAXOSMITHKLINE-B0692283A

PATIENT
  Age: 6 Decade
  Sex: Male

DRUGS (2)
  1. LAMIVUDINE [Suspect]
     Route: 048
  2. HEPSERA [Suspect]
     Indication: HEPATITIS B
     Route: 048

REACTIONS (1)
  - FANCONI SYNDROME [None]
